FAERS Safety Report 11058714 (Version 2)
Quarter: 2015Q2

REPORT INFORMATION
  Report Type: Spontaneous
  Country: US (occurrence: US)
  Receive Date: 20150423
  Receipt Date: 20150624
  Transmission Date: 20150821
  Serious: Yes (Other)
  Sender: FDA-Public Use
  Company Number: US-SUN PHARMACEUTICAL INDUSTRIES LTD-2015US-95877

PATIENT
  Age: 78 Year
  Sex: Male

DRUGS (2)
  1. QUETIAPINE [Suspect]
     Active Substance: QUETIAPINE
     Dosage: 100 MG, BID
     Route: 065
  2. QUETIAPINE [Suspect]
     Active Substance: QUETIAPINE
     Indication: ANGER
     Dosage: 20 MG, BID
     Route: 065

REACTIONS (10)
  - Headache [Unknown]
  - Hypertension [Unknown]
  - Memory impairment [Unknown]
  - Abdominal pain upper [Unknown]
  - Abdominal distension [Unknown]
  - Constipation [Unknown]
  - Odynophagia [Unknown]
  - Nausea [Unknown]
  - Somnolence [Unknown]
  - Blood glucose increased [Unknown]
